FAERS Safety Report 5621611-1 (Version None)
Quarter: 2008Q1

REPORT INFORMATION
  Report Type: 
  Country: None (occurrence: None)
  Receive Date: 20080211
  Receipt Date: 20080131
  Transmission Date: 20080703
  Serious: Yes (Hospitalization)
  Sender: FDA-Public Use
  Company Number: PHNU2007DE03527

PATIENT
  Age: 53 Year
  Sex: Female

DRUGS (3)
  1. GLEEVEC [Suspect]
     Indication: CHRONIC MYELOID LEUKAEMIA
     Dosage: 400 MG, QD
     Route: 048
     Dates: start: 20051223
  2. PRIMAXIN [Concomitant]
     Dosage: 500 MG, TID
     Route: 042
     Dates: start: 20051225
  3. TAVANIC [Concomitant]

REACTIONS (11)
  - ASTHENIA [None]
  - BONE PAIN [None]
  - CHILLS [None]
  - FATIGUE [None]
  - HEADACHE [None]
  - MYALGIA [None]
  - PITYRIASIS ROSEA [None]
  - PRURITUS [None]
  - PSORIASIS [None]
  - PYREXIA [None]
  - SINUSITIS [None]
